FAERS Safety Report 8375505-1 (Version None)
Quarter: 2012Q2

REPORT INFORMATION
  Report Type: 
  Country: None (occurrence: None)
  Receive Date: 20120522
  Receipt Date: 20120511
  Transmission Date: 20120825
  Serious: Yes (Other)
  Sender: FDA-Public Use
  Company Number: JP-VERTEX PHARMACEUTICALS INC.-AE-2012-007236

PATIENT
  Age: 66 Year
  Sex: Male

DRUGS (13)
  1. REBETOL [Concomitant]
     Route: 048
     Dates: start: 20120416
  2. PEG-INTRON [Concomitant]
     Indication: HEPATITIS C
     Route: 058
     Dates: start: 20120312
  3. REBAMIPIDE [Concomitant]
     Route: 048
  4. DEPAS [Concomitant]
     Route: 048
  5. ACTONEL [Concomitant]
     Route: 048
  6. MAGNESIUM SULFATE [Concomitant]
     Route: 048
     Dates: start: 20120316, end: 20120331
  7. TELAVIC (TELAPREVIR) [Suspect]
     Indication: HEPATITIS C
     Route: 048
     Dates: start: 20120312
  8. ASPARA-CA [Concomitant]
     Route: 048
  9. MAGNESIUM HYDROXIDE TAB [Concomitant]
     Route: 048
     Dates: start: 20120416
  10. REBETOL [Concomitant]
     Indication: HEPATITIS C
     Route: 048
     Dates: start: 20120312, end: 20120415
  11. URSO 250 [Concomitant]
     Route: 048
     Dates: end: 20120401
  12. FLUOROMETHOLONE [Concomitant]
     Route: 047
     Dates: start: 20120315, end: 20120327
  13. SP TROCHES [Concomitant]

REACTIONS (1)
  - ERYTHEMA MULTIFORME [None]
